FAERS Safety Report 24799882 (Version 1)
Quarter: 2025Q1

REPORT INFORMATION
  Report Type: Spontaneous
  Country: US (occurrence: US)
  Receive Date: 20250102
  Receipt Date: 20250102
  Transmission Date: 20250408
  Serious: No
  Sender: LEO PHARM
  Company Number: US-LEO Pharma-376489

PATIENT
  Age: 66 Year
  Sex: Female

DRUGS (1)
  1. ADBRY [Suspect]
     Active Substance: TRALOKINUMAB-LDRM
     Indication: Dermatitis atopic
     Route: 058
     Dates: start: 202409

REACTIONS (2)
  - Allergy to chemicals [Unknown]
  - Eczema [Unknown]
